FAERS Safety Report 8585357-2 (Version None)
Quarter: 2012Q3

REPORT INFORMATION
  Report Type: 
  Country: None (occurrence: None)
  Receive Date: 20120810
  Receipt Date: 20120807
  Transmission Date: 20120928
  Serious: Yes (Other)
  Sender: FDA-Public Use
  Company Number: BR-PFIZER INC-2012194203

PATIENT
  Sex: Female

DRUGS (2)
  1. FELDENE [Suspect]
     Dosage: UNK
     Route: 054
     Dates: start: 20030101
  2. METFORMIN [Concomitant]
     Indication: DIABETES MELLITUS
     Dosage: UNK
     Dates: start: 20020101

REACTIONS (1)
  - LARYNGEAL OEDEMA [None]
